FAERS Safety Report 18735971 (Version 1)
Quarter: 2021Q1

REPORT INFORMATION
  Report Type: Spontaneous
  Country: FR (occurrence: FR)
  Receive Date: 20210113
  Receipt Date: 20210113
  Transmission Date: 20210419
  Serious: Yes (Other)
  Sender: FDA-Public Use
  Company Number: FR-009507513-2101FRA005646

PATIENT
  Age: 63 Year
  Sex: Male

DRUGS (16)
  1. PANTOPRAZOLE [Concomitant]
     Active Substance: PANTOPRAZOLE
     Dosage: 20 MILLIGRAM, 1 DAY (QD)
     Route: 048
  2. OROCAL D3 [Concomitant]
     Active Substance: CALCIUM CARBONATE\CHOLECALCIFEROL
     Dosage: 2 DOSAGE FORM, 1 DAY (QD), TABLET TO BE SUCKED
     Route: 048
  3. MONTELUKAST SODIUM. [Suspect]
     Active Substance: MONTELUKAST SODIUM
     Indication: ASTHMA-CHRONIC OBSTRUCTIVE PULMONARY DISEASE OVERLAP SYNDROME
     Dosage: UNK
     Route: 055
  4. SPIRIVA [Suspect]
     Active Substance: TIOTROPIUM BROMIDE MONOHYDRATE
     Indication: ASTHMA-CHRONIC OBSTRUCTIVE PULMONARY DISEASE OVERLAP SYNDROME
     Dosage: UNK, INHALATION POWDER IN CAPSULE
     Route: 055
  5. ATROVENT [Suspect]
     Active Substance: IPRATROPIUM BROMIDE
     Indication: ASTHMA-CHRONIC OBSTRUCTIVE PULMONARY DISEASE OVERLAP SYNDROME
     Dosage: 1 DOSAGE FORM
     Route: 055
  6. AMLOR [Concomitant]
     Active Substance: AMLODIPINE BESYLATE
     Dosage: 10 MILLIGRAM, 1 DAY (QD)
     Route: 048
  7. PREDNISOLONE. [Concomitant]
     Active Substance: PREDNISOLONE
     Dosage: 20 MILLIGRAM, 1 DAY (QD)
     Route: 048
  8. PERINDOPRIL [Concomitant]
     Active Substance: PERINDOPRIL
     Dosage: 4 MILLIGRAM, 1 DAY (QD)
     Route: 048
  9. BRICANYL [Suspect]
     Active Substance: TERBUTALINE SULFATE
     Indication: ASTHMA-CHRONIC OBSTRUCTIVE PULMONARY DISEASE OVERLAP SYNDROME
     Dosage: 1 DOSAGE FORM, 1 DAY (QD)
     Route: 055
  10. SERETIDE [Suspect]
     Active Substance: FLUTICASONE PROPIONATE\SALMETEROL XINAFOATE
     Indication: ASTHMA-CHRONIC OBSTRUCTIVE PULMONARY DISEASE OVERLAP SYNDROME
     Dosage: 4 DOSAGE FORM, 1 DAY (QD)
     Route: 055
  11. METFORMIN [Concomitant]
     Active Substance: METFORMIN HYDROCHLORIDE
     Dosage: 3000 MILLIGRAM, 1 DAY (QD)
     Route: 048
  12. DESLORATADINE. [Concomitant]
     Active Substance: DESLORATADINE
     Dosage: 5 MILLIGRAM, 1 DAY (QD)
     Route: 048
  13. VENTOLINE (ALBUTEROL SULFATE) [Suspect]
     Active Substance: ALBUTEROL SULFATE
     Indication: ASTHMA-CHRONIC OBSTRUCTIVE PULMONARY DISEASE OVERLAP SYNDROME
     Dosage: 6 DOSAGE FORM, 1 DAY (QD)
     Route: 055
  14. DIFFU?K [Concomitant]
     Active Substance: POTASSIUM CHLORIDE
     Dosage: 1800 MILLIGRAM, 1 DAY (QD)
     Route: 048
  15. NASONEX [Concomitant]
     Active Substance: MOMETASONE FUROATE
     Dosage: 4 DOSAGE FORM, 1 DAY (QD), SUSPENSION FOR NASAL SPRAY
     Route: 055
  16. GLIMEPIRIDE. [Concomitant]
     Active Substance: GLIMEPIRIDE
     Dosage: 4 MILLIGRAM, 1 DAY (QD)
     Route: 048

REACTIONS (2)
  - Drug ineffective [Recovered/Resolved]
  - Asthma [Recovered/Resolved]

NARRATIVE: CASE EVENT DATE: 20200322
